FAERS Safety Report 24957703 (Version 3)
Quarter: 2025Q3

REPORT INFORMATION
  Report Type: Report from Study
  Country: US (occurrence: US)
  Receive Date: 20250212
  Receipt Date: 20250904
  Transmission Date: 20251021
  Serious: Yes (Hospitalization, Other)
  Sender: ABBVIE
  Company Number: US-ABBVIE-6124035

PATIENT
  Age: 68 Year
  Sex: Female
  Weight: 56.699 kg

DRUGS (3)
  1. RINVOQ [Suspect]
     Active Substance: UPADACITINIB
     Indication: Rheumatoid arthritis
     Dosage: FORM STRENGTH: 15 MILLIGRAM,
     Route: 048
     Dates: start: 20210906
  2. LEXAPRO [Concomitant]
     Active Substance: ESCITALOPRAM OXALATE
     Indication: Depression
  3. XANAX [Concomitant]
     Active Substance: ALPRAZOLAM
     Indication: Anxiety

REACTIONS (10)
  - Intervertebral disc degeneration [Recovering/Resolving]
  - Anaemia [Unknown]
  - Peroneal nerve palsy [Recovering/Resolving]
  - Procedural complication [Unknown]
  - Spinal fusion surgery [Unknown]
  - Spinal operation [Unknown]
  - Blood cholesterol abnormal [Unknown]
  - Neurological procedural complication [Unknown]
  - Fatigue [Recovering/Resolving]
  - Asthenia [Unknown]

NARRATIVE: CASE EVENT DATE: 20240201
